FAERS Safety Report 11576422 (Version 1)
Quarter: 2015Q3

REPORT INFORMATION
  Report Type: Spontaneous
  Country: US (occurrence: US)
  Receive Date: 20150930
  Receipt Date: 20150930
  Transmission Date: 20151125
  Serious: No
  Sender: FDA-Public Use
  Company Number: US-TORRENT-00000976

PATIENT
  Sex: Female
  Weight: 72 kg

DRUGS (1)
  1. DULOXETINE HYDROCHLORIDE- DULOXETINE HCL CAPS, DELAYED RELEASE [Suspect]
     Active Substance: DULOXETINE HYDROCHLORIDE
     Indication: PRODUCT USED FOR UNKNOWN INDICATION
     Dosage: ONCE A DAY

REACTIONS (3)
  - Drug ineffective [Unknown]
  - Nervousness [Unknown]
  - Anxiety [Unknown]
